FAERS Safety Report 8500922-6 (Version None)
Quarter: 2012Q3

REPORT INFORMATION
  Report Type: 
  Country: None (occurrence: None)
  Receive Date: 20120710
  Receipt Date: 20120708
  Transmission Date: 20120928
  Serious: Yes (Death)
  Sender: FDA-Public Use
  Company Number: PHHY2012MX058584

PATIENT
  Sex: Female

DRUGS (1)
  1. ONBREZ [Suspect]
     Indication: LUNG NEOPLASM MALIGNANT
     Dosage: 300 UG, 1 CAPSULE A DAY
     Dates: start: 20120501

REACTIONS (6)
  - RESPIRATORY ARREST [None]
  - CONDITION AGGRAVATED [None]
  - WEIGHT DECREASED [None]
  - DECREASED APPETITE [None]
  - THIRST DECREASED [None]
  - EATING DISORDER [None]
